FAERS Safety Report 16163735 (Version 1)
Quarter: 2019Q2

REPORT INFORMATION
  Report Type: Spontaneous
  Country: ID (occurrence: ID)
  Receive Date: 20190405
  Receipt Date: 20190405
  Transmission Date: 20190711
  Serious: Yes (Hospitalization, Other)
  Sender: FDA-Public Use
  Company Number: ID-PFIZER INC-2019144547

PATIENT
  Age: 51 Year
  Sex: Male
  Weight: 41 kg

DRUGS (8)
  1. LINEZOLID. [Suspect]
     Active Substance: LINEZOLID
     Indication: TUBERCULOSIS
     Dosage: UNK, ONCE DAILY (600 QD ORAL)
     Route: 048
     Dates: start: 20171116
  2. METHYLPREDNISOLONE ACETATE. [Concomitant]
     Active Substance: METHYLPREDNISOLONE ACETATE
     Dosage: UNK
  3. AMBROXOL [Concomitant]
     Active Substance: AMBROXOL
     Dosage: UNK
  4. BEDAQUILINE [Suspect]
     Active Substance: BEDAQUILINE
     Indication: TUBERCULOSIS
     Dosage: UNK, ONCE DAILY (200 QD ORAL)
     Route: 048
     Dates: start: 20171116
  5. CLOFAZIMINE [Suspect]
     Active Substance: CLOFAZIMINE
     Indication: TUBERCULOSIS
     Dosage: UNK, ONCE DAILY (100 QD ORAL)
     Route: 048
     Dates: start: 20171116
  6. LANSOPRAZOLE. [Concomitant]
     Active Substance: LANSOPRAZOLE
     Indication: DYSPEPSIA
     Dosage: UNK
  7. DELAMANID [Suspect]
     Active Substance: DELAMANID
     Indication: TUBERCULOSIS
     Dosage: UNK, ONCE DAILY (200 QD ORAL)
     Route: 048
     Dates: start: 20180523
  8. MOXIFLOXACIN. [Suspect]
     Active Substance: MOXIFLOXACIN
     Indication: TUBERCULOSIS
     Dosage: UNK, ONCE DAILY (400 QD ORAL)
     Route: 048
     Dates: start: 20171116

REACTIONS (8)
  - Infection [Unknown]
  - Blood chloride decreased [Recovered/Resolved]
  - Haemoglobin decreased [Unknown]
  - Electrocardiogram QT prolonged [Recovered/Resolved]
  - Treatment noncompliance [Unknown]
  - Incorrect product administration duration [Unknown]
  - Disease progression [Unknown]
  - Blood sodium decreased [Unknown]

NARRATIVE: CASE EVENT DATE: 20181019
